FAERS Safety Report 8463233-3 (Version None)
Quarter: 2012Q2

REPORT INFORMATION
  Report Type: 
  Country: None (occurrence: None)
  Receive Date: 20120625
  Receipt Date: 20120614
  Transmission Date: 20120825
  Serious: Yes (Hospitalization)
  Sender: FDA-Public Use
  Company Number: US-ACTELION-A-US2012-66418

PATIENT

DRUGS (5)
  1. TRACLEER [Suspect]
     Indication: PULMONARY ARTERIAL HYPERTENSION
     Dosage: UNK
     Route: 048
     Dates: start: 20110804
  2. EPOPROSTENOL SODIUM [Suspect]
     Indication: PULMONARY ARTERIAL HYPERTENSION
     Dosage: 2 NG/KG, PER MIN
     Route: 042
     Dates: start: 20111227
  3. ASPIRIN ANALGESIC [Concomitant]
  4. EPOPROSTENOL SODIUM [Suspect]
     Dosage: 64 NG/KG, PER MIN
     Route: 042
     Dates: start: 20111227
  5. PLAVIX [Concomitant]

REACTIONS (3)
  - DYSPNOEA [None]
  - CARDIAC FAILURE CONGESTIVE [None]
  - PULMONARY OEDEMA [None]
